FAERS Safety Report 8776424 (Version 3)
Quarter: 2012Q4

REPORT INFORMATION
  Report Type: 
  Country: US (occurrence: US)
  Receive Date: 20120910
  Receipt Date: 20121017
  Transmission Date: 20130627
  Serious: Yes (Hospitalization, Other)
  Sender: FDA-Public Use
  Company Number: PHEH2012US013493

PATIENT
  Age: 73 Year
  Sex: Female

DRUGS (1)
  1. GILENYA [Suspect]
     Indication: MULTIPLE SCLEROSIS
     Dosage: 0.5 mg, QD
     Route: 048
     Dates: start: 20120321, end: 20120903

REACTIONS (3)
  - Urinary tract infection [Unknown]
  - Vitamin D decreased [Not Recovered/Not Resolved]
  - Infection susceptibility increased [Unknown]
